FAERS Safety Report 9284169 (Version 2)
Quarter: 2014Q1

REPORT INFORMATION
  Report Type: Spontaneous
  Country: US (occurrence: US)
  Receive Date: 20130510
  Receipt Date: 20140312
  Transmission Date: 20141002
  Serious: Yes (Other)
  Sender: FDA-Public Use
  Company Number: CHPA2013US007880

PATIENT
  Age: 75 Year
  Sex: Male

DRUGS (3)
  1. MAALOX ANTACID/ANTIGAS RS LIQ COOL MINT [Suspect]
     Indication: GASTRIC ULCER
     Dosage: UNK, UNK
     Route: 048
  2. MAALOX ANTACID/ANTIGAS RS LIQ COOL MINT [Suspect]
     Indication: OFF LABEL USE
  3. MAALOX ANTACID TABLETS - UNKNOWN [Suspect]

REACTIONS (4)
  - Gastric ulcer [Not Recovered/Not Resolved]
  - Condition aggravated [Not Recovered/Not Resolved]
  - Therapeutic response unexpected [Unknown]
  - Expired drug administered [Unknown]
